FAERS Safety Report 4768416-1 (Version None)
Quarter: 2005Q3

REPORT INFORMATION
  Report Type: 
  Country: None (occurrence: None)
  Receive Date: 20050914
  Receipt Date: 20050725
  Transmission Date: 20060218
  Serious: Yes (Hospitalization, Other)
  Sender: FDA-Public Use
  Company Number: US-GLAXOSMITHKLINE-A0567465A

PATIENT
  Age: 40 Year
  Sex: Female

DRUGS (1)
  1. GOODY'S EXTRA STRENGTH HEADACHE POWDER [Suspect]
     Indication: MIGRAINE
     Route: 048

REACTIONS (3)
  - GASTRIC DISORDER [None]
  - GASTRIC PERFORATION [None]
  - INTESTINAL PERFORATION [None]
